FAERS Safety Report 5128811-8 (Version None)
Quarter: 2006Q4

REPORT INFORMATION
  Report Type: 
  Country: None (occurrence: None)
  Receive Date: 20061011
  Receipt Date: 20060922
  Transmission Date: 20070319
  Serious: Yes (Other)
  Sender: FDA-Public Use
  Company Number: US200609006093

PATIENT
  Age: 65 Year
  Sex: Female

DRUGS (11)
  1. HUMALOG [Suspect]
     Indication: DIABETES MELLITUS
     Dosage: SEE IMAGE
     Dates: start: 20060725
  2. HUMALOG [Suspect]
     Indication: DIABETES MELLITUS
     Dosage: SEE IMAGE
     Dates: start: 20060919
  3. HUMULIN N [Suspect]
     Indication: DIABETES MELLITUS
     Dosage: 25 U, DAILY (1/D),
     Dates: start: 20060725
  4. HUMULIN 70/30 [Suspect]
     Indication: DIABETES MELLITUS
  5. HUMULIN L [Suspect]
     Indication: DIABETES MELLITUS
  6. ILETIN [Suspect]
     Indication: DIABETES MELLITUS
  7. ILETIN [Suspect]
     Indication: DIABETES MELLITUS
  8. INSULIN (INSULIN) [Concomitant]
  9. LANTUS [Concomitant]
  10. DIURETICS [Concomitant]
  11. SYNTHROID [Concomitant]

REACTIONS (12)
  - BLOOD GLUCOSE DECREASED [None]
  - BLOOD GLUCOSE FLUCTUATION [None]
  - BLOOD GLUCOSE INCREASED [None]
  - DEPRESSED LEVEL OF CONSCIOUSNESS [None]
  - EYE HAEMORRHAGE [None]
  - FALL [None]
  - FOOT FRACTURE [None]
  - HYPERSOMNIA [None]
  - JOINT INJURY [None]
  - LIMB INJURY [None]
  - LOWER LIMB FRACTURE [None]
  - VISUAL ACUITY REDUCED [None]
